FAERS Safety Report 5652596-X (Version None)
Quarter: 2008Q1

REPORT INFORMATION
  Report Type: 
  Country: None (occurrence: None)
  Receive Date: 20080306
  Receipt Date: 20080227
  Transmission Date: 20080703
  Serious: Yes (Hospitalization)
  Sender: FDA-Public Use
  Company Number: SE-JNJFOC-20080205627

PATIENT
  Age: 53 Year
  Sex: Female

DRUGS (6)
  1. REMICADE [Suspect]
     Route: 042
  2. REMICADE [Suspect]
     Indication: COLITIS ULCERATIVE
     Route: 042
  3. ASACOL [Suspect]
     Indication: COLITIS ULCERATIVE
     Route: 048
  4. METHOTREXATE [Suspect]
     Indication: PSORIATIC ARTHROPATHY
  5. OMEPRAZOLE [Concomitant]
  6. FOLACIN [Concomitant]

REACTIONS (2)
  - ALVEOLITIS [None]
  - LUNG INFILTRATION [None]
